FAERS Safety Report 7606890-3 (Version None)
Quarter: 2011Q3

REPORT INFORMATION
  Report Type: 
  Country: None (occurrence: None)
  Receive Date: 20110713
  Receipt Date: 20110705
  Transmission Date: 20111222
  Serious: Yes (Other)
  Sender: FDA-Public Use
  Company Number: EG-GLAXOSMITHKLINE-B0732570A

PATIENT
  Sex: Female

DRUGS (1)
  1. ZINACEF [Suspect]
     Indication: UPPER RESPIRATORY TRACT INFECTION
     Dosage: 500MG PER DAY
     Route: 065

REACTIONS (3)
  - PRURITUS [None]
  - JAUNDICE CHOLESTATIC [None]
  - CHROMATURIA [None]
